FAERS Safety Report 18832458 (Version 1)
Quarter: 2021Q1

REPORT INFORMATION
  Report Type: Spontaneous
  Country: PL (occurrence: PL)
  Receive Date: 20210203
  Receipt Date: 20210203
  Transmission Date: 20210419
  Serious: Yes (Other)
  Sender: FDA-Public Use
  Company Number: PL-SUN PHARMACEUTICAL INDUSTRIES LTD-2021RR-278723

PATIENT
  Sex: Male

DRUGS (4)
  1. PREDNISONE. [Suspect]
     Active Substance: PREDNISONE
     Indication: XANTHOGRANULOMA
     Dosage: 40MG/M2 DAILY IN 3 DIVIDED DOSES AS A 4?WEEK COURSE, TAPERING OVER A PERIOD OF 2 WEEKS
     Route: 048
  2. CALCIUM FOLINAT [Suspect]
     Active Substance: LEUCOVORIN CALCIUM
     Indication: XANTHOGRANULOMA
     Dosage: 12MG/M2 AND 30 HOURS AFTER THE STOP OF THE MTX
     Route: 048
  3. VINBLASTINE [Suspect]
     Active Substance: VINBLASTINE
     Indication: XANTHOGRANULOMA
     Dosage: 6 MG/M2 DAY 1 OF WEEK 1, 2, 3, 4, 5, 6
     Route: 040
  4. METHOTREXATE. [Suspect]
     Active Substance: METHOTREXATE
     Indication: XANTHOGRANULOMA
     Dosage: 500 MG/M2, 24 HOURS?INFUSION WEEK 1, 3, 5.
     Route: 040

REACTIONS (2)
  - Therapy partial responder [Unknown]
  - Infection [Unknown]
